FAERS Safety Report 14719598 (Version 4)
Quarter: 2018Q2

REPORT INFORMATION
  Report Type: Spontaneous
  Country: US (occurrence: US)
  Receive Date: 20180405
  Receipt Date: 20180530
  Transmission Date: 20180711
  Serious: No
  Sender: FDA-Public Use
  Company Number: US-PFIZER INC-2018137548

PATIENT
  Sex: Female

DRUGS (1)
  1. METHOTREXATE SODIUM. [Suspect]
     Active Substance: METHOTREXATE SODIUM
     Indication: RHEUMATOID ARTHRITIS
     Dosage: 0.7 ML, WEEKLY
     Route: 058
     Dates: start: 201407, end: 201506

REACTIONS (2)
  - Gastrointestinal disorder [Unknown]
  - Drug hypersensitivity [Unknown]
